FAERS Safety Report 8907046 (Version 1)
Quarter: 2012Q4

REPORT INFORMATION
  Report Type: 
  Country: US (occurrence: US)
  Receive Date: 20121113
  Receipt Date: 20121113
  Transmission Date: 20130627
  Serious: No
  Sender: FDA-Public Use
  Company Number: US-AMGEN-USASP2012010754

PATIENT
  Age: 58 Year
  Sex: Female
  Weight: 56.69 kg

DRUGS (6)
  1. ENBREL [Suspect]
     Indication: PRODUCT USED FOR UNKNOWN INDICATION
     Dosage: 25 mg, 2 times/wk
  2. TRAMADOL HCL [Concomitant]
     Dosage: 50 mg, UNK
  3. PAROXETINE [Concomitant]
     Dosage: 10 mg, UNK
  4. SIMVASTATIN [Concomitant]
     Dosage: 5 mg, UNK
  5. LEVOTHYROXIN [Concomitant]
     Dosage: UNK
  6. AZOR                               /00595201/ [Concomitant]
     Dosage: UNK

REACTIONS (3)
  - Injection site erythema [Unknown]
  - Injection site pain [Unknown]
  - Injection site bruising [Unknown]
